FAERS Safety Report 8930017 (Version 3)
Quarter: 2013Q2

REPORT INFORMATION
  Report Type: Report from Study
  Country: JP (occurrence: JP)
  Receive Date: 20121128
  Receipt Date: 20130524
  Transmission Date: 20140414
  Serious: Yes (Hospitalization)
  Sender: FDA-Public Use
  Company Number: JP-JNJFOC-20120517690

PATIENT
  Age: 59 Year
  Sex: Female

DRUGS (11)
  1. STELARA [Suspect]
     Indication: PSORIASIS
     Route: 058
     Dates: start: 20130405
  2. STELARA [Suspect]
     Indication: PSORIASIS
     Route: 058
     Dates: start: 20130111
  3. STELARA [Suspect]
     Indication: PSORIASIS
     Route: 058
     Dates: start: 20121019
  4. STELARA [Suspect]
     Indication: PSORIASIS
     Route: 058
     Dates: start: 20120720
  5. STELARA [Suspect]
     Indication: PSORIASIS
     Dosage: 3 TIMES
     Route: 058
     Dates: start: 20120330
  6. STELARA [Suspect]
     Indication: PSORIASIS
     Route: 058
     Dates: start: 20120427
  7. MYSER [Concomitant]
     Indication: PSORIASIS
     Route: 061
  8. MYSER [Concomitant]
     Indication: PSORIASIS
     Route: 061
  9. DOVONEX [Concomitant]
     Indication: PSORIASIS
     Route: 061
  10. DOVONEX [Concomitant]
     Indication: PSORIASIS
     Route: 061
  11. CLARITIN [Concomitant]
     Indication: PSORIASIS
     Route: 048

REACTIONS (1)
  - Femoral neck fracture [Recovered/Resolved]
